FAERS Safety Report 9096065 (Version 1)
Quarter: 2013Q1

REPORT INFORMATION
  Report Type: Spontaneous
  Country: EC (occurrence: EC)
  Receive Date: 20130207
  Receipt Date: 20130207
  Transmission Date: 20140127
  Serious: Yes (Hospitalization)
  Sender: FDA-Public Use
  Company Number: PHHY2013EC011512

PATIENT
  Age: 69 Year
  Sex: Female

DRUGS (2)
  1. DIOVAN HCT [Suspect]
     Indication: HYPERTENSION
     Dosage: 1 DF, (160 MG VALS AND 12.5 MG HCTZ),QD
     Dates: start: 20100913
  2. NORVASC [Concomitant]
     Indication: HYPERTENSION
     Dosage: 1 DF, QD

REACTIONS (3)
  - Anaemia [Unknown]
  - Fatigue [Unknown]
  - Red blood cell count decreased [Unknown]
